FAERS Safety Report 9149007 (Version 1)
Quarter: 2013Q1

REPORT INFORMATION
  Report Type: Spontaneous
  Country: US (occurrence: US)
  Receive Date: 20130308
  Receipt Date: 20130308
  Transmission Date: 20140127
  Serious: No
  Sender: FDA-Public Use
  Company Number: US-ENDO PHARMACEUTICALS INC.-OPCR20121555

PATIENT
  Age: 43 Year
  Sex: Female

DRUGS (3)
  1. OPANA ER [Suspect]
     Indication: PAIN
     Route: 048
     Dates: start: 2012
  2. OPANA ER [Concomitant]
     Indication: PAIN
     Route: 048
     Dates: start: 2010, end: 2012
  3. HYDROMORPHONE [Concomitant]
     Indication: BREAKTHROUGH PAIN
     Dosage: UNK
     Route: 048

REACTIONS (6)
  - Chills [Unknown]
  - Hyperhidrosis [Unknown]
  - Diarrhoea [Unknown]
  - Nausea [Unknown]
  - Abdominal pain upper [Unknown]
  - Drug ineffective [Unknown]
